FAERS Safety Report 12937624 (Version 2)
Quarter: 2016Q4

REPORT INFORMATION
  Report Type: Report from Study
  Country: AU (occurrence: AU)
  Receive Date: 20161114
  Receipt Date: 20161216
  Transmission Date: 20170207
  Serious: Yes (Other)
  Sender: FDA-Public Use
  Company Number: AU-REGENERON PHARMACEUTICALS, INC.-2016-23704

PATIENT

DRUGS (2)
  1. EYLEA [Suspect]
     Active Substance: AFLIBERCEPT
     Indication: NEOVASCULAR AGE-RELATED MACULAR DEGENERATION
     Dosage: 2 MG, LAST DOSE PRIOR TO EVENT ONSET ADMINISTERED ON 18-OCT-2016
     Route: 031
     Dates: start: 2014, end: 20161018
  2. EYLEA [Suspect]
     Active Substance: AFLIBERCEPT
     Dosage: DAILY DOSE 2 MG
     Route: 031

REACTIONS (3)
  - Eye infection viral [Unknown]
  - Visual impairment [Unknown]
  - Injection site reaction [Unknown]
